FAERS Safety Report 9140587 (Version 1)
Quarter: 2013Q1

REPORT INFORMATION
  Report Type: Spontaneous
  Country: TW (occurrence: TW)
  Receive Date: 20130305
  Receipt Date: 20130305
  Transmission Date: 20140127
  Serious: Yes (Hospitalization)
  Sender: FDA-Public Use
  Company Number: TW-TEVA-388718ISR

PATIENT
  Age: 58 Year
  Sex: Male

DRUGS (3)
  1. FLUOROURACIL [Suspect]
     Indication: COLON CANCER
     Dosage: FOR 46 HOURS
  2. IRINOTECAN [Concomitant]
     Indication: COLON CANCER
     Dosage: FOR 90 MINUTES
  3. BEVACIZUMAB [Concomitant]
     Indication: COLON CANCER
     Dosage: FOR 90 MINUTES

REACTIONS (4)
  - Hyperammonaemic encephalopathy [Recovered/Resolved]
  - Renal failure acute [Recovered/Resolved]
  - Nausea [Unknown]
  - Vomiting [Unknown]
